FAERS Safety Report 9316489 (Version 1)
Quarter: 2013Q2

REPORT INFORMATION
  Report Type: Spontaneous
  Country: US (occurrence: None)
  Receive Date: 20130528
  Receipt Date: 20130528
  Transmission Date: 20140414
  Serious: Yes (Hospitalization)
  Sender: FDA-Public Use
  Company Number: None

PATIENT
  Age: 13 Year
  Sex: Female
  Weight: 44.45 kg

DRUGS (2)
  1. ESCITALOPRAM OXALATE [Suspect]
     Indication: DEPRESSION
     Route: 048
     Dates: start: 20130314, end: 20130412
  2. ESCITALOPRAM OXALATE [Concomitant]

REACTIONS (4)
  - Self-injurious ideation [None]
  - Psychotic disorder [None]
  - Hallucination, visual [None]
  - Refusal of treatment by relative [None]
